FAERS Safety Report 17916624 (Version 1)
Quarter: 2020Q2

REPORT INFORMATION
  Report Type: Spontaneous
  Country: MX (occurrence: MX)
  Receive Date: 20200619
  Receipt Date: 20200619
  Transmission Date: 20200714
  Serious: Yes (Other)
  Sender: FDA-Public Use
  Company Number: MX-GLAXOSMITHKLINE-MX2020AMR101919

PATIENT

DRUGS (2)
  1. VANNAIR [Suspect]
     Active Substance: BUDESONIDE\FORMOTEROL FUMARATE DIHYDRATE
     Indication: PRODUCT USED FOR UNKNOWN INDICATION
     Dosage: UNK
  2. AVAMYS 2A [Suspect]
     Active Substance: FLUTICASONE FUROATE
     Indication: NASAL CONGESTION
     Dosage: UNK, 2 SHOTS

REACTIONS (7)
  - Apnoea [Unknown]
  - Dry mouth [Unknown]
  - Secretion discharge [Unknown]
  - Dry throat [Unknown]
  - Sleep apnoea syndrome [Unknown]
  - Insomnia [Recovering/Resolving]
  - Oxygen saturation decreased [Recovered/Resolved]
